FAERS Safety Report 8854893 (Version 1)
Quarter: 2012Q4

REPORT INFORMATION
  Report Type: 
  Country: DE (occurrence: DE)
  Receive Date: 20121023
  Receipt Date: 20121023
  Transmission Date: 20130627
  Serious: Yes (Hospitalization, Congenital Anomaly, Other)
  Sender: FDA-Public Use
  Company Number: DE-RANBAXY-2012RR-61335

PATIENT
  Sex: Male
  Weight: 5 kg

DRUGS (4)
  1. SERTRALINE [Suspect]
     Dosage: 100 mg/day, after week 8: 50 mg/day. Additional information: 0.-39.6. gestational week
     Route: 064
     Dates: start: 20100101, end: 20111106
  2. FOLIO FORTE [Concomitant]
     Dosage: 0.8 mg/day
     Route: 064
     Dates: start: 20110213, end: 20111106
  3. EUPHORBIUM [Concomitant]
     Dosage: 13. - 21. gestational week
     Route: 064
  4. AMOXICILLIN PLUS [Concomitant]
     Dosage: 39.6. - 39.6. gestational week
     Route: 064
     Dates: start: 20111106, end: 20111106

REACTIONS (7)
  - Neonatal respiratory distress syndrome [Recovered/Resolved]
  - Large for dates baby [Unknown]
  - Patent ductus arteriosus [Recovering/Resolving]
  - Atrial septal defect [Unknown]
  - Congenital tricuspid valve incompetence [Unknown]
  - Agitation neonatal [Recovered/Resolved]
  - Hypertonia neonatal [Recovered/Resolved]
